FAERS Safety Report 4341872-9 (Version None)
Quarter: 2004Q2

REPORT INFORMATION
  Report Type: 
  Country: None (occurrence: None)
  Receive Date: 20040415
  Receipt Date: 20040324
  Transmission Date: 20050107
  Serious: No
  Sender: FDA-Public Use
  Company Number: USA031152770

PATIENT
  Sex: Female
  Weight: 3 kg

DRUGS (2)
  1. STRATTERA [Suspect]
  2. SERTRALINE [Concomitant]

REACTIONS (1)
  - DRUG EXPOSURE DURING PREGNANCY [None]
